FAERS Safety Report 6527998-X (Version None)
Quarter: 2009Q4

REPORT INFORMATION
  Report Type: 
  Country: None (occurrence: None)
  Receive Date: 20091229
  Receipt Date: 20091216
  Transmission Date: 20100525
  Serious: Yes (Other)
  Sender: FDA-Public Use
  Company Number: 2009SP042363

PATIENT

DRUGS (2)
  1. REMERON [Suspect]
     Indication: DRUG USE FOR UNKNOWN INDICATION
     Dosage: ; PO
     Route: 048
  2. MEILAX [Concomitant]

REACTIONS (3)
  - DIZZINESS [None]
  - FALL [None]
  - ROAD TRAFFIC ACCIDENT [None]
